FAERS Safety Report 5066827-0 (Version None)
Quarter: 2006Q3

REPORT INFORMATION
  Report Type: 
  Country: None (occurrence: None)
  Receive Date: 20060801
  Receipt Date: 20060724
  Transmission Date: 20061208
  Serious: Yes (Other)
  Sender: FDA-Public Use
  Company Number: FR-BRISTOL-MYERS SQUIBB COMPANY-13455571

PATIENT
  Age: 74 Year
  Sex: Female

DRUGS (5)
  1. ORENCIA [Suspect]
     Indication: RHEUMATOID ARTHRITIS
     Route: 042
     Dates: start: 20060101
  2. METHOTREXATE [Concomitant]
  3. DI-ANTALVIC [Concomitant]
  4. TEMERIT [Concomitant]
     Indication: HYPERTENSION
  5. CORTANCYL [Concomitant]

REACTIONS (1)
  - PHLEBITIS [None]
